FAERS Safety Report 5661518-7 (Version None)
Quarter: 2008Q1

REPORT INFORMATION
  Report Type: 
  Country: None (occurrence: None)
  Receive Date: 20080312
  Receipt Date: 20080229
  Transmission Date: 20080703
  Serious: Yes (Other)
  Sender: FDA-Public Use
  Company Number: GB-ROCHE-527579

PATIENT
  Age: 53 Year
  Sex: Male
  Weight: 80 kg

DRUGS (2)
  1. PEGASYS [Suspect]
     Indication: HEPATITIS C
     Route: 058
     Dates: start: 20060901, end: 20070801
  2. RIBAVIRIN [Concomitant]
     Route: 048
     Dates: start: 20060901

REACTIONS (2)
  - ABDOMINAL MASS [None]
  - INJECTION SITE MASS [None]
